FAERS Safety Report 14897732 (Version 1)
Quarter: 2018Q2

REPORT INFORMATION
  Report Type: Spontaneous
  Country: BE (occurrence: BE)
  Receive Date: 20180515
  Receipt Date: 20180515
  Transmission Date: 20180711
  Serious: Yes (Death, Hospitalization)
  Sender: FDA-Public Use
  Company Number: BE-MYLANLABS-2018M1031307

PATIENT
  Age: 25 Year
  Sex: Male

DRUGS (1)
  1. PALIPERIDONE. [Suspect]
     Active Substance: PALIPERIDONE
     Indication: SCHIZOPHRENIA
     Route: 065

REACTIONS (22)
  - Diarrhoea [Recovering/Resolving]
  - Cardiac arrest [Recovered/Resolved]
  - Gastrointestinal mucosa hyperaemia [Unknown]
  - Pneumonia escherichia [Unknown]
  - Toxic epidermal necrolysis [Fatal]
  - Escherichia sepsis [Unknown]
  - Hypovolaemic shock [Unknown]
  - Encephalopathy [Unknown]
  - Oedema mucosal [Unknown]
  - Gastrointestinal haemorrhage [Unknown]
  - Multiple organ dysfunction syndrome [Fatal]
  - Hypercatabolism [Unknown]
  - Hypoxic-ischaemic encephalopathy [Unknown]
  - Enterococcal sepsis [Unknown]
  - Malabsorption [Unknown]
  - Hypokalaemia [Unknown]
  - Staphylococcal sepsis [Unknown]
  - Uveitis [Unknown]
  - Septic shock [Fatal]
  - Gastrointestinal disorder [Unknown]
  - Dehydration [Unknown]
  - Pneumonia pseudomonal [Unknown]
